FAERS Safety Report 7121835-0 (Version None)
Quarter: 2010Q4

REPORT INFORMATION
  Report Type: 
  Country: None (occurrence: None)
  Receive Date: 20101124
  Receipt Date: 20101115
  Transmission Date: 20110411
  Serious: Yes (Hospitalization)
  Sender: FDA-Public Use
  Company Number: US-ROCHE-736583

PATIENT
  Sex: Male
  Weight: 66.4 kg

DRUGS (1)
  1. BEVACIZUMAB [Suspect]
     Dosage: PROTOCOL PRESCRIBE DOSE:1132 MG, TOTAL DOSE COURSE : 1132 MG, LAST DOSE PRIOR SAE:04 NOVEMBER 2010
     Route: 065
     Dates: start: 20100610

REACTIONS (1)
  - CHRONIC OBSTRUCTIVE PULMONARY DISEASE [None]
